FAERS Safety Report 17053191 (Version 3)
Quarter: 2022Q2

REPORT INFORMATION
  Report Type: Spontaneous
  Country: US (occurrence: US)
  Receive Date: 20191120
  Receipt Date: 20220624
  Transmission Date: 20220721
  Serious: No
  Sender: FDA-Public Use
  Company Number: US-PFIZER INC-2019224871

PATIENT
  Age: 60 Year
  Sex: Female
  Weight: 63.492 kg

DRUGS (2)
  1. CHANTIX [Suspect]
     Active Substance: VARENICLINE TARTRATE
     Indication: Smoking cessation therapy
     Dosage: 2 MG, DAILY (STRENGTH: 1 MG, QUANTITY FOR 90 DAYS: 180)
  2. CHANTIX [Suspect]
     Active Substance: VARENICLINE TARTRATE
     Indication: Chronic obstructive pulmonary disease
     Dosage: UNK
     Route: 048

REACTIONS (1)
  - Feeling abnormal [Recovered/Resolved]

NARRATIVE: CASE EVENT DATE: 20191101
